FAERS Safety Report 9921922 (Version 1)
Quarter: 2014Q1

REPORT INFORMATION
  Report Type: Spontaneous
  Country: ES (occurrence: ES)
  Receive Date: 20140225
  Receipt Date: 20140225
  Transmission Date: 20141002
  Serious: Yes (Death, Other)
  Sender: FDA-Public Use
  Company Number: ES-WATSON-2014-02936

PATIENT
  Age: 67 Year
  Sex: Male

DRUGS (7)
  1. TRANEXAMIC ACID (UNKNOWN) [Suspect]
     Indication: RECTAL HAEMORRHAGE
     Dosage: 1000 MG, Q8H
     Route: 048
  2. TRANEXAMIC ACID (UNKNOWN) [Suspect]
     Dosage: 1000 MG, BID
     Route: 048
  3. SPIRONOLACTONE [Concomitant]
     Indication: PRODUCT USED FOR UNKNOWN INDICATION
     Dosage: UNK
     Route: 065
  4. FUROSEMIDE [Concomitant]
     Indication: PRODUCT USED FOR UNKNOWN INDICATION
     Dosage: UNK
     Route: 065
  5. OMEPRAZOLE [Concomitant]
     Indication: PRODUCT USED FOR UNKNOWN INDICATION
     Dosage: UNK
     Route: 065
  6. LACTULOSE [Concomitant]
     Indication: PRODUCT USED FOR UNKNOWN INDICATION
     Dosage: UNK
     Route: 065
  7. BISOPROLOL [Concomitant]
     Indication: PRODUCT USED FOR UNKNOWN INDICATION
     Dosage: UNK
     Route: 065

REACTIONS (4)
  - Toxic epidermal necrolysis [Fatal]
  - Renal failure acute [Fatal]
  - Respiratory tract infection [Fatal]
  - Multi-organ failure [Fatal]
